FAERS Safety Report 7496145-2 (Version None)
Quarter: 2011Q2

REPORT INFORMATION
  Report Type: 
  Country: None (occurrence: None)
  Receive Date: 20110523
  Receipt Date: 20110509
  Transmission Date: 20111010
  Serious: Yes (Hospitalization, Other)
  Sender: FDA-Public Use
  Company Number: PHHY2011BR40364

PATIENT
  Sex: Female

DRUGS (8)
  1. DIOVAN [Suspect]
     Indication: HYPERTENSION
     Dosage: 1/4 OF TABLET, DAILY
     Route: 048
     Dates: start: 20090501
  2. TENORETIC [Concomitant]
     Dosage: 2 DF, DAILY (2 TABLETS OF 50 MG)
     Dates: end: 20100606
  3. DIOVAN [Suspect]
     Dosage: 2 DF, UNK (2 TABLETS OF 80 MG)
     Route: 048
     Dates: end: 20110201
  4. OMEPRAZOLE [Concomitant]
  5. LORAX [Concomitant]
     Dosage: 6 MG, UNK
  6. DIOVAN [Suspect]
     Dosage: 0.5 DF, HALF TABLET DAILY
     Route: 048
  7. POTASSIUM CHLORIDE [Concomitant]
  8. DIOVAN [Suspect]
     Dosage: 80 MG, DAILY
     Route: 048

REACTIONS (5)
  - BLOOD POTASSIUM DECREASED [None]
  - WEIGHT INCREASED [None]
  - BLOOD PRESSURE INADEQUATELY CONTROLLED [None]
  - WRONG TECHNIQUE IN DRUG USAGE PROCESS [None]
  - HYPERTENSION [None]
